FAERS Safety Report 8114018-9 (Version None)
Quarter: 2012Q1

REPORT INFORMATION
  Report Type: 
  Country: None (occurrence: None)
  Receive Date: 20120203
  Receipt Date: 20120201
  Transmission Date: 20120608
  Serious: No
  Sender: FDA-Public Use
  Company Number: US-PFIZER INC-2012028431

PATIENT
  Sex: Female
  Weight: 65.76 kg

DRUGS (3)
  1. LYRICA [Suspect]
     Indication: PAIN
     Dosage: 75 MG, 3X/DAY
     Route: 048
     Dates: start: 20111201, end: 20120101
  2. ACETYLSALICYLIC ACID [Concomitant]
     Dosage: UNK
  3. MORPHINE [Concomitant]
     Dosage: UNK

REACTIONS (1)
  - PAIN [None]
